FAERS Safety Report 5346014-9 (Version None)
Quarter: 2007Q2

REPORT INFORMATION
  Report Type: 
  Country: None (occurrence: None)
  Receive Date: 20070605
  Receipt Date: 20070524
  Transmission Date: 20071010
  Serious: Yes (Hospitalization)
  Sender: FDA-Public Use
  Company Number: FR-ELI_LILLY_AND_COMPANY-FR200512003301

PATIENT
  Age: 85 Year
  Sex: Male

DRUGS (9)
  1. PENTOXIFYLLINE [Concomitant]
  2. ASPIRIN [Concomitant]
  3. BISOPROLOL FUMARATE [Concomitant]
  4. RABEPRAZOLE SODIUM [Concomitant]
  5. PREDNISOLONE [Concomitant]
     Indication: PROPHYLAXIS
  6. VITAMIN B12 + FOLIC ACID [Concomitant]
     Indication: VITAMIN SUPPLEMENTATION
  7. ALIMTA [Suspect]
     Indication: SMALL CELL LUNG CANCER STAGE UNSPECIFIED
     Dosage: 870 MG, OTHER
     Route: 042
     Dates: start: 20050930, end: 20051024
  8. ZOFRAN [Concomitant]
     Indication: PROPHYLAXIS
     Dosage: UNK, UNKNOWN
     Route: 065
  9. ARANESP                                 /UNK/ [Concomitant]
     Indication: ANAEMIA OF MALIGNANT DISEASE
     Dosage: UNK, UNKNOWN
     Route: 058
     Dates: start: 20050930, end: 20051024

REACTIONS (9)
  - ERYTHEMA [None]
  - HAEMORRHAGE [None]
  - MYOGLOBINAEMIA [None]
  - PANCYTOPENIA [None]
  - RENAL FAILURE [None]
  - RHABDOMYOLYSIS [None]
  - SEPSIS [None]
  - TOXIC EPIDERMAL NECROLYSIS [None]
  - TRANSAMINASES INCREASED [None]
